FAERS Safety Report 7978510-X (Version None)
Quarter: 2011Q4

REPORT INFORMATION
  Report Type: 
  Country: None (occurrence: None)
  Receive Date: 20111214
  Receipt Date: 20111208
  Transmission Date: 20120403
  Serious: Yes (Hospitalization, Other)
  Sender: FDA-Public Use
  Company Number: US-JNJFOC-20100704243

PATIENT
  Sex: Female

DRUGS (1)
  1. LEVAQUIN [Suspect]
     Indication: INFECTION
     Route: 048
     Dates: start: 20070101

REACTIONS (5)
  - TENDON RUPTURE [None]
  - GANGRENE [None]
  - LEG AMPUTATION [None]
  - DEPRESSION [None]
  - PLANTAR FASCIITIS [None]
